FAERS Safety Report 22134950 (Version 2)
Quarter: 2023Q2

REPORT INFORMATION
  Report Type: Report from Study
  Country: BR (occurrence: BR)
  Receive Date: 20230324
  Receipt Date: 20230412
  Transmission Date: 20230722
  Serious: Yes (Disabling, Other)
  Sender: FDA-Public Use
  Company Number: BR-002147023-NVSC2023BR066417

PATIENT
  Age: 66 Year
  Sex: Male

DRUGS (3)
  1. TASIGNA [Suspect]
     Active Substance: NILOTINIB
     Indication: Product used for unknown indication
     Dosage: UNK
     Route: 065
  2. IMATINIB [Suspect]
     Active Substance: IMATINIB
     Indication: Chronic myeloid leukaemia
     Dosage: 100 MG
     Route: 065
  3. IMATINIB [Suspect]
     Active Substance: IMATINIB
     Dosage: 300 MG
     Route: 048
     Dates: start: 20161205, end: 20230308

REACTIONS (5)
  - Acute kidney injury [Not Recovered/Not Resolved]
  - Diabetic metabolic decompensation [Unknown]
  - Renal impairment [Not Recovered/Not Resolved]
  - Condition aggravated [Unknown]
  - Hypertension [Unknown]

NARRATIVE: CASE EVENT DATE: 20230308
